FAERS Safety Report 9777644 (Version 2)
Quarter: 2014Q1

REPORT INFORMATION
  Report Type: Spontaneous
  Country: IT (occurrence: IT)
  Receive Date: 20131223
  Receipt Date: 20140219
  Transmission Date: 20141002
  Serious: Yes (Hospitalization)
  Sender: FDA-Public Use
  Company Number: IT-TEVA-450870ISR

PATIENT
  Age: 47 Year
  Sex: Male

DRUGS (3)
  1. FUROSEMIDE [Suspect]
     Indication: HEPATIC CIRRHOSIS
     Dosage: 75 MILLIGRAM DAILY;
     Route: 048
     Dates: start: 20130909, end: 20130911
  2. CANRENONE [Suspect]
     Indication: HEPATIC CIRRHOSIS
     Dosage: 200 MILLIGRAM DAILY;
     Route: 048
     Dates: start: 20130909, end: 20130911
  3. DOXYCYCLINE HYCLATE [Suspect]
     Indication: DERMO-HYPODERMITIS
     Dosage: 200 MILLIGRAM DAILY;
     Route: 048
     Dates: start: 20130909, end: 20130911

REACTIONS (1)
  - Haematemesis [Recovering/Resolving]
